FAERS Safety Report 5616215-0 (Version None)
Quarter: 2008Q1

REPORT INFORMATION
  Report Type: 
  Country: None (occurrence: None)
  Receive Date: 20080204
  Receipt Date: 20080118
  Transmission Date: 20080703
  Serious: No
  Sender: FDA-Public Use
  Company Number: 8029473

PATIENT
  Age: 10 Year
  Sex: Male
  Weight: 38 kg

DRUGS (1)
  1. EQUASYM [Suspect]
     Dosage: 30 MG 1/D
     Dates: start: 20070120

REACTIONS (6)
  - CRYING [None]
  - FATIGUE [None]
  - HYPOTONIA [None]
  - RESTLESSNESS [None]
  - SOCIAL AVOIDANT BEHAVIOUR [None]
  - TIC [None]
